FAERS Safety Report 5497634-2 (Version None)
Quarter: 2007Q4

REPORT INFORMATION
  Report Type: 
  Country: None (occurrence: None)
  Receive Date: 20071025
  Receipt Date: 20061220
  Transmission Date: 20080405
  Serious: Yes (Other)
  Sender: FDA-Public Use
  Company Number: A0632321A

PATIENT
  Age: 66 Year
  Sex: Male

DRUGS (4)
  1. ADVAIR DISKUS 100/50 [Suspect]
     Indication: ASTHMA
     Dosage: 1PUFF TWICE PER DAY
     Route: 055
     Dates: start: 20010101
  2. NASONEX [Concomitant]
  3. FEXOFENADINE [Concomitant]
  4. PROTONIX [Concomitant]

REACTIONS (1)
  - CATARACT [None]
